FAERS Safety Report 8926122 (Version 1)
Quarter: 2012Q4

REPORT INFORMATION
  Report Type: Report from Study
  Country: GB (occurrence: GB)
  Receive Date: 20121127
  Receipt Date: 20121127
  Transmission Date: 20130627
  Serious: Yes (Hospitalization, Other)
  Sender: FDA-Public Use
  Company Number: GB-AMGEN-GBRCT2012074671

PATIENT
  Age: 54 Year
  Sex: Male
  Weight: 63.5 kg

DRUGS (8)
  1. ETANERCEPT [Suspect]
     Indication: PRODUCT USED FOR UNKNOWN INDICATION
     Dosage: 25 mg, 2x/week
     Dates: start: 20091206, end: 20110414
  2. ETANERCEPT [Suspect]
     Dosage: 50 mg, weekly
     Dates: start: 20110527, end: 20120812
  3. ATORVASTATIN [Concomitant]
     Dosage: UNK
     Dates: start: 20090601
  4. ACETYLSALICYLIC ACID [Concomitant]
     Dosage: UNK
     Dates: start: 20110701
  5. CEPHALEXIN                         /00145501/ [Concomitant]
     Dosage: UNK
     Dates: start: 20120612, end: 20120619
  6. CEPHALEXIN                         /00145501/ [Concomitant]
     Dosage: UNK
     Dates: start: 20120705, end: 20120712
  7. CEPHALEXIN                         /00145501/ [Concomitant]
     Dosage: UNK
     Dates: start: 20120728, end: 20120806
  8. CEPHALEXIN                         /00145501/ [Concomitant]
     Dosage: UNK
     Dates: start: 20120816, end: 20120818

REACTIONS (1)
  - Lymphoma [Not Recovered/Not Resolved]
